FAERS Safety Report 17144859 (Version 1)
Quarter: 2019Q4

REPORT INFORMATION
  Report Type: Spontaneous
  Country: US (occurrence: US)
  Receive Date: 20191212
  Receipt Date: 20191212
  Transmission Date: 20200122
  Serious: No
  Sender: FDA-Public Use
  Company Number: US-NOVEN PHARMACEUTICALS, INC.-US2019000482

PATIENT

DRUGS (5)
  1. MINIVELLE [Suspect]
     Active Substance: ESTRADIOL
     Indication: HAIR TEXTURE ABNORMAL
     Dosage: 0.0375 MG, UNKNOWN
     Route: 062
     Dates: start: 201908, end: 20190824
  2. MINIVELLE [Suspect]
     Active Substance: ESTRADIOL
     Indication: DRY SKIN
     Dosage: 0.05 MG, UNKNOWN
     Route: 062
     Dates: start: 2017, end: 2018
  3. MINIVELLE [Suspect]
     Active Substance: ESTRADIOL
     Indication: VULVOVAGINAL DRYNESS
     Dosage: 0.0375 MG, UNKNOWN
     Route: 062
     Dates: start: 201908, end: 201909
  4. SYNTHROID [Concomitant]
     Active Substance: LEVOTHYROXINE SODIUM
     Indication: HYPOTHYROIDISM
  5. MINIVELLE [Suspect]
     Active Substance: ESTRADIOL
     Indication: OFF LABEL USE

REACTIONS (5)
  - Therapy cessation [Recovered/Resolved]
  - Application site pruritus [Recovered/Resolved]
  - Application site discolouration [Not Recovered/Not Resolved]
  - Application site pruritus [Not Recovered/Not Resolved]
  - Off label use [Not Recovered/Not Resolved]

NARRATIVE: CASE EVENT DATE: 2017
